FAERS Safety Report 8326664-8 (Version None)
Quarter: 2012Q2

REPORT INFORMATION
  Report Type: 
  Country: None (occurrence: None)
  Receive Date: 20120501
  Receipt Date: 20090807
  Transmission Date: 20120825
  Serious: No
  Sender: FDA-Public Use
  Company Number: US-TEVA-2009009441

PATIENT
  Sex: Female
  Weight: 74.91 kg

DRUGS (12)
  1. LEVOTHYROXINE SODIUM [Concomitant]
     Indication: HYPOTHYROIDISM
     Dosage: 50 MICROGRAM;
     Dates: start: 20070101
  2. OXYCODONE HCL [Concomitant]
     Indication: FIBROMYALGIA
     Dates: start: 20070101
  3. CLONAZEPAM [Concomitant]
     Indication: ANXIETY
     Dates: start: 20030101
  4. PROVENTIL [Concomitant]
     Indication: CHRONIC OBSTRUCTIVE PULMONARY DISEASE
     Dates: start: 20040101
  5. NUVIGIL [Suspect]
     Dosage: 250 MILLIGRAM;
     Route: 048
     Dates: start: 20090720
  6. EFFEXOR [Concomitant]
     Indication: DEPRESSION
     Dates: start: 20080101
  7. CYTOMEL [Concomitant]
     Indication: HYPOTHYROIDISM
     Dosage: 5 MICROGRAM;
     Route: 048
     Dates: start: 20080101
  8. HYDROCODONE BITARTRATE [Concomitant]
     Indication: PAIN
  9. NUVIGIL [Suspect]
     Indication: SOMNOLENCE
     Dosage: 150 MILLIGRAM;
     Route: 048
     Dates: start: 20090711, end: 20090719
  10. HYDROCORTISONE [Concomitant]
     Indication: ADRENAL INSUFFICIENCY
     Dates: start: 20080101
  11. OXYCODONE HCL [Concomitant]
     Indication: PAIN
  12. HYDROCODONE BITARTRATE [Concomitant]
     Indication: FIBROMYALGIA
     Dates: start: 20070101

REACTIONS (9)
  - DECREASED APPETITE [None]
  - DRUG TOLERANCE [None]
  - PROTEIN URINE PRESENT [None]
  - TACHYCARDIA [None]
  - BILIRUBIN URINE [None]
  - ASTHENIA [None]
  - FATIGUE [None]
  - URINARY CASTS [None]
  - INSOMNIA [None]
